FAERS Safety Report 7479262-2 (Version None)
Quarter: 2011Q2

REPORT INFORMATION
  Report Type: 
  Country: None (occurrence: None)
  Receive Date: 20110513
  Receipt Date: 20110511
  Transmission Date: 20111010
  Serious: Yes (Hospitalization)
  Sender: FDA-Public Use
  Company Number: US-BRISTOL-MYERS SQUIBB COMPANY-15540792

PATIENT
  Age: 21 Year
  Sex: Male

DRUGS (3)
  1. ADDERALL XR 10 [Concomitant]
     Dosage: 1 DF = 20-30MG
  2. ABILIFY [Suspect]
     Indication: DEPRESSION
     Route: 048
     Dates: start: 20100101
  3. LEXAPRO [Concomitant]
     Dosage: 1 DF : 20-60MG

REACTIONS (1)
  - TYPE 1 DIABETES MELLITUS [None]
